FAERS Safety Report 5770187-7 (Version None)
Quarter: 2008Q2

REPORT INFORMATION
  Report Type: 
  Country: None (occurrence: None)
  Receive Date: 20080613
  Receipt Date: 20080515
  Transmission Date: 20081010
  Serious: No
  Sender: FDA-Public Use
  Company Number: US-ABBOTT-08P-163-0448807-00

PATIENT
  Sex: Female
  Weight: 65.83 kg

DRUGS (8)
  1. HUMIRA [Suspect]
     Indication: PSORIASIS
     Dosage: STARTER DOSE
     Route: 058
     Dates: start: 20080419
  2. HUMIRA [Suspect]
     Dosage: X1
     Route: 058
  3. HUMIRA [Suspect]
     Route: 058
  4. BIRTH CONTROL [Concomitant]
     Indication: CONTRACEPTION
     Route: 048
  5. ATORVASTATIN CALCIUM [Concomitant]
     Indication: BLOOD CHOLESTEROL INCREASED
     Route: 048
  6. ERGOCALCIFEROL [Concomitant]
     Indication: VITAMIN SUPPLEMENTATION
     Route: 048
  7. CORTISONE [Concomitant]
     Indication: PSORIASIS
     Route: 061
  8. FISH OIL [Concomitant]
     Indication: MEDICAL DIET
     Route: 048

REACTIONS (2)
  - ACCIDENTAL EXPOSURE [None]
  - INJECTION SITE PAIN [None]
